FAERS Safety Report 13037690 (Version 1)
Quarter: 2016Q4

REPORT INFORMATION
  Report Type: Spontaneous
  Country: FR (occurrence: FR)
  Receive Date: 20161217
  Receipt Date: 20161217
  Transmission Date: 20170207
  Serious: Yes (Life-Threatening, Hospitalization, Other)
  Sender: FDA-Public Use
  Company Number: FR-ASTRAZENECA-2016SF32048

PATIENT
  Age: 46 Year
  Sex: Male

DRUGS (13)
  1. XEROQUEL [Suspect]
     Active Substance: QUETIAPINE FUMARATE
     Route: 048
     Dates: start: 20161028, end: 20161031
  2. NOZINAN [Suspect]
     Active Substance: LEVOMEPROMAZINE
     Indication: PSYCHOTIC DISORDER
     Route: 048
     Dates: start: 20161028, end: 20161031
  3. TERCIAN [Suspect]
     Active Substance: CYAMEMAZINE
     Indication: PSYCHOTIC DISORDER
     Route: 048
     Dates: start: 2009, end: 20161022
  4. TAHOR [Concomitant]
     Active Substance: ATORVASTATIN CALCIUM
  5. HUMALOG [Concomitant]
     Active Substance: INSULIN LISPRO
  6. NOZINAN [Suspect]
     Active Substance: LEVOMEPROMAZINE
     Indication: PSYCHOTIC DISORDER
     Route: 048
     Dates: start: 2009, end: 20161022
  7. OXAZEPAM. [Concomitant]
     Active Substance: OXAZEPAM
  8. TERCIAN [Suspect]
     Active Substance: CYAMEMAZINE
     Indication: PSYCHOTIC DISORDER
     Route: 048
     Dates: start: 20161028, end: 20161031
  9. LANTUS SOLOSTAR [Concomitant]
     Active Substance: INSULIN GLARGINE
     Dosage: 100U/ML SOLUTION FOR INJECTION IN PREFILLED PEN
  10. SKENAN [Concomitant]
     Active Substance: MORPHINE SULFATE
  11. ACTISKENAN [Concomitant]
     Active Substance: MORPHINE SULFATE
  12. AVLOCARDYL [Concomitant]
     Active Substance: PROPRANOLOL HYDROCHLORIDE
  13. XEROQUEL [Suspect]
     Active Substance: QUETIAPINE FUMARATE
     Route: 048
     Dates: start: 2009, end: 20161022

REACTIONS (16)
  - Acute kidney injury [Unknown]
  - Metastases to bone [Unknown]
  - Renal impairment [Unknown]
  - Anaemia [Unknown]
  - Systemic inflammatory response syndrome [Unknown]
  - Lung adenocarcinoma [Unknown]
  - General physical health deterioration [Unknown]
  - Hypertension [Unknown]
  - Mydriasis [Unknown]
  - Pain [Unknown]
  - Pyrexia [Recovering/Resolving]
  - Psychotic disorder [Unknown]
  - Encephalopathy [Unknown]
  - Tachypnoea [Unknown]
  - Tachycardia [Unknown]
  - Metastases to adrenals [Unknown]

NARRATIVE: CASE EVENT DATE: 20161011
